FAERS Safety Report 13422518 (Version 1)
Quarter: 2017Q2

REPORT INFORMATION
  Report Type: Spontaneous
  Country: US (occurrence: US)
  Receive Date: 20170407
  Receipt Date: 20170407
  Transmission Date: 20170830
  Serious: Yes (Other)
  Sender: FDA-Public Use
  Company Number: None

PATIENT
  Sex: Male

DRUGS (2)
  1. STIVARGA [Suspect]
     Active Substance: REGORAFENIB
     Indication: METASTASES TO LIVER
     Dosage: STIVARAGA (3X28) 40MG TAKE 3 TABLETS (120 MG) ORALLY DAILY ORAL
     Route: 048
     Dates: start: 20160923
  2. STIVARGA [Suspect]
     Active Substance: REGORAFENIB
     Indication: NEOPLASM MALIGNANT
     Dosage: STIVARAGA (3X28) 40MG TAKE 3 TABLETS (120 MG) ORALLY DAILY ORAL
     Route: 048
     Dates: start: 20160923

REACTIONS (2)
  - Gait disturbance [None]
  - Pain in extremity [None]
